FAERS Safety Report 15388393 (Version 2)
Quarter: 2018Q4

REPORT INFORMATION
  Report Type: Spontaneous
  Country: FR (occurrence: FR)
  Receive Date: 20180915
  Receipt Date: 20181009
  Transmission Date: 20190204
  Serious: Yes (Hospitalization)
  Sender: FDA-Public Use
  Company Number: FR-AMGEN-FRASP2018127528

PATIENT
  Age: 86 Year
  Sex: Female
  Weight: 40 kg

DRUGS (2)
  1. ARANESP [Suspect]
     Active Substance: DARBEPOETIN ALFA
     Indication: CHRONIC KIDNEY DISEASE
     Dosage: 300 MCG, Q3WK
     Route: 065
     Dates: start: 2016, end: 201711
  2. ARANESP [Suspect]
     Active Substance: DARBEPOETIN ALFA
     Dosage: 500 MCG, UNK
     Route: 065
     Dates: start: 201802

REACTIONS (5)
  - General physical health deterioration [Not Recovered/Not Resolved]
  - Haemoglobin decreased [Recovering/Resolving]
  - Lung disorder [Recovering/Resolving]
  - Respiratory syncytial virus infection [Recovering/Resolving]
  - Nosocomial infection [Recovering/Resolving]

NARRATIVE: CASE EVENT DATE: 20180214
